FAERS Safety Report 11167679 (Version 2)
Quarter: 2015Q2

REPORT INFORMATION
  Report Type: Spontaneous
  Country: US (occurrence: US)
  Receive Date: 20150605
  Receipt Date: 20150626
  Transmission Date: 20150821
  Serious: Yes (Other)
  Sender: FDA-Public Use
  Company Number: US-PFIZER INC-2015185587

PATIENT
  Age: 57 Year
  Sex: Female
  Weight: 79 kg

DRUGS (2)
  1. NEURONTIN [Suspect]
     Active Substance: GABAPENTIN
     Indication: NEURALGIA
     Dosage: 300 MG, 3X/DAY
     Dates: start: 201501
  2. NEURONTIN [Suspect]
     Active Substance: GABAPENTIN
     Dosage: 600 MG, 3X/DAY

REACTIONS (5)
  - Drug ineffective [Unknown]
  - Cerebral haemorrhage [Unknown]
  - Head discomfort [Recovered/Resolved]
  - Anxiety [Unknown]
  - Throat tightness [Unknown]

NARRATIVE: CASE EVENT DATE: 201501
